FAERS Safety Report 9221747 (Version 2)
Quarter: 2013Q2

REPORT INFORMATION
  Report Type: Spontaneous
  Country: US (occurrence: US)
  Receive Date: 20130410
  Receipt Date: 20130522
  Transmission Date: 20140414
  Serious: Yes (Hospitalization)
  Sender: FDA-Public Use
  Company Number: US-SANOFI-AVENTIS-2013SA036477

PATIENT
  Age: 69 Year
  Sex: Female

DRUGS (14)
  1. PLAVIX [Suspect]
  2. ENOXAPARIN SODIUM [Suspect]
  3. SPIRIVA [Suspect]
  4. OXYCODONE [Suspect]
  5. WARFARIN [Suspect]
  6. HYDROCODONE [Suspect]
  7. LEVOTHYROXINE [Suspect]
  8. ROBAXIN [Suspect]
  9. VITAMIN D [Suspect]
  10. ALBUTEROL [Suspect]
  11. AZITHROMYCIN [Suspect]
  12. CLONAZEPAM [Suspect]
  13. LACTULOSE [Suspect]
  14. CETIRIZINE [Suspect]

REACTIONS (3)
  - Hearing impaired [Unknown]
  - Pain [Unknown]
  - Malaise [Unknown]
